FAERS Safety Report 8982806 (Version 1)
Quarter: 2012Q4

REPORT INFORMATION
  Report Type: Report from Study
  Country: DE (occurrence: DE)
  Receive Date: 20121221
  Receipt Date: 20121221
  Transmission Date: 20130627
  Serious: Yes (Hospitalization)
  Sender: FDA-Public Use
  Company Number: DE-ELI_LILLY_AND_COMPANY-DE201212006426

PATIENT
  Age: 70 Year
  Sex: Female
  Weight: 61 kg

DRUGS (16)
  1. PEMETREXED [Suspect]
     Indication: NON-SMALL CELL LUNG CANCER
     Dosage: 500 mg, every 21 days
     Route: 042
     Dates: start: 20100510
  2. PEMETREXED [Suspect]
     Dosage: 850 mg, every 21 days
     Route: 042
     Dates: start: 20100512
  3. PEMETREXED [Suspect]
     Dosage: 900 mg, every 21 days
     Route: 042
     Dates: start: 20100521
  4. BEVACIZUMAB [Suspect]
     Indication: NON-SMALL CELL LUNG CANCER
     Dosage: 450 mg, every three weeks
     Route: 042
     Dates: start: 20100512
  5. FUROSEMIDE [Concomitant]
     Dosage: UNK
     Dates: end: 20100601
  6. RIVOTRIL [Concomitant]
     Dosage: 1 DF, qd
     Dates: start: 20100512
  7. DEXAMETHASONE [Concomitant]
  8. PANTOPRAZOLE [Concomitant]
     Dosage: 20 mg, qd
     Dates: start: 200912
  9. IBUHEXAL [Concomitant]
     Dosage: 600 mg, qd
     Dates: start: 200912
  10. SEDOTUSSIN                         /00184901/ [Concomitant]
     Dosage: 75 g, qd
     Dates: start: 201003
  11. DOXYCYCLINE [Concomitant]
     Dosage: 200 mg, qd
     Dates: start: 20100516
  12. FORTECORTIN                        /00016002/ [Concomitant]
     Dosage: 1 DF, qd
     Dates: start: 20100512, end: 20101011
  13. KEVATRIL [Concomitant]
     Dosage: 1 ampule, qd
     Dates: start: 20100512
  14. FOLSAN [Concomitant]
     Dosage: 1 DF, qd
     Dates: start: 20100505
  15. FORTECORTIN [Concomitant]
     Dosage: 1 DF, qd
     Dates: start: 20100511
  16. FORTECORTIN [Concomitant]
     Dosage: 8 mg, qd
     Dates: start: 20100512

REACTIONS (7)
  - Dehydration [Recovered/Resolved]
  - General physical health deterioration [Not Recovered/Not Resolved]
  - General physical health deterioration [Not Recovered/Not Resolved]
  - Decreased appetite [Not Recovered/Not Resolved]
  - Weight decreased [Recovered/Resolved]
  - Fatigue [Recovered/Resolved]
  - Dehydration [Recovered/Resolved]
